FAERS Safety Report 9439110 (Version 1)
Quarter: 2013Q3

REPORT INFORMATION
  Report Type: Spontaneous
  Country: JP (occurrence: JP)
  Receive Date: 20130802
  Receipt Date: 20130802
  Transmission Date: 20140515
  Serious: Yes (Other)
  Sender: FDA-Public Use
  Company Number: PHHY2013JP081006

PATIENT
  Age: 69 Year
  Sex: Female

DRUGS (3)
  1. FLUDARABINE [Suspect]
     Indication: CHRONIC LYMPHOCYTIC LEUKAEMIA
     Dosage: 25 MG/M2, ON DAYS 2 TO 4
  2. CYCLOPHOSPHAMIDE [Suspect]
     Indication: CHRONIC LYMPHOCYTIC LEUKAEMIA
     Dosage: 250 MG/M2, ON DAYS 2 TO 4
  3. RITUXIMAB [Suspect]
     Indication: CHRONIC LYMPHOCYTIC LEUKAEMIA
     Dosage: 375 MG/M2 ON DAY 1

REACTIONS (3)
  - Myelodysplastic syndrome [Recovering/Resolving]
  - Bone marrow failure [Recovering/Resolving]
  - Pancytopenia [Recovering/Resolving]
